FAERS Safety Report 19561839 (Version 1)
Quarter: 2021Q3

REPORT INFORMATION
  Report Type: Spontaneous
  Country: US (occurrence: US)
  Receive Date: 20210715
  Receipt Date: 20210715
  Transmission Date: 20211014
  Serious: No
  Sender: FDA-Public Use
  Company Number: US-CELGENEUS-USA-20210701823

PATIENT
  Sex: Male

DRUGS (2)
  1. REVLIMID [Suspect]
     Active Substance: LENALIDOMIDE
     Indication: PLASMA CELL MYELOMA
     Dosage: 15 MILLIGRAM
     Route: 048
     Dates: start: 20210510
  2. REVLIMID [Suspect]
     Active Substance: LENALIDOMIDE
     Indication: ABNORMAL LOSS OF WEIGHT
     Dosage: 5 MILLIGRAM
     Route: 048
     Dates: start: 202107

REACTIONS (4)
  - Vertebral lesion [Recovered/Resolved]
  - Product dose omission issue [Unknown]
  - Back pain [Recovered/Resolved]
  - Feeling abnormal [Recovered/Resolved]

NARRATIVE: CASE EVENT DATE: 2021
